FAERS Safety Report 8850337 (Version 1)
Quarter: 2012Q4

REPORT INFORMATION
  Report Type: 
  Country: IT (occurrence: IT)
  Receive Date: 20121019
  Receipt Date: 20121019
  Transmission Date: 20130627
  Serious: Yes (Other)
  Sender: FDA-Public Use
  Company Number: IT-PFIZER INC-2012257326

PATIENT
  Age: 13 Year
  Sex: Female

DRUGS (1)
  1. GENOTROPIN MINIQUICK [Suspect]
     Indication: BODY HEIGHT BELOW NORMAL
     Dosage: 1.6 mg, 1x/day
     Route: 058
     Dates: start: 20050608, end: 20120813

REACTIONS (6)
  - Loss of consciousness [Recovered/Resolved]
  - Apnoea [Recovered/Resolved]
  - Eye movement disorder [Recovered/Resolved]
  - Hypertonia [Recovered/Resolved]
  - Fall [Recovered/Resolved]
  - Head injury [Recovered/Resolved]
